FAERS Safety Report 9406368 (Version 3)
Quarter: 2013Q3

REPORT INFORMATION
  Report Type: Spontaneous
  Country: AT (occurrence: AT)
  Receive Date: 20130718
  Receipt Date: 20130820
  Transmission Date: 20140515
  Serious: No
  Sender: FDA-Public Use
  Company Number: AT-AMGEN-AUTSP2013049030

PATIENT
  Age: 86 Year
  Sex: Male
  Weight: 71 kg

DRUGS (3)
  1. PROLIA [Suspect]
     Indication: OSTEOPOROSIS
     Dosage: 60 MG, UNK
     Route: 065
     Dates: start: 20130109
  2. ACELOR [Concomitant]
  3. TRENANTONE [Concomitant]
     Route: 058

REACTIONS (1)
  - Constipation [Unknown]
